FAERS Safety Report 17285099 (Version 1)
Quarter: 2020Q1

REPORT INFORMATION
  Report Type: Spontaneous
  Country: AT (occurrence: AT)
  Receive Date: 20200117
  Receipt Date: 20200117
  Transmission Date: 20200409
  Serious: Yes (Other)
  Sender: FDA-Public Use
  Company Number: AT-GILEAD-2020-0447004

PATIENT
  Age: 44 Year
  Sex: Male

DRUGS (7)
  1. ODEFSEY [Suspect]
     Active Substance: EMTRICITABINE\RILPIVIRINE HYDROCHLORIDE\TENOFOVIR ALAFENAMIDE FUMARATE
     Indication: HIV INFECTION
     Dosage: UNK
     Route: 065
     Dates: start: 20170807, end: 20190917
  2. VIROPEL [Concomitant]
     Dosage: UNK
     Dates: start: 20180213, end: 20180313
  3. DICLOFENAC [Concomitant]
     Active Substance: DICLOFENAC
     Dosage: UNK
     Dates: start: 20180702, end: 20190917
  4. CEFTRIAXONE. [Concomitant]
     Active Substance: CEFTRIAXONE
     Dosage: UNK
     Dates: start: 20190201
  5. OSPEXIN [Concomitant]
     Dosage: UNK
     Dates: start: 20180308, end: 20180702
  6. HAVRIX [Concomitant]
     Active Substance: HEPATITIS A VIRUS STRAIN HM175 ANTIGEN (FORMALDEHYDE INACTIVATED)
     Dosage: UNK
     Dates: start: 20180213, end: 20190917
  7. RETARPEN [BENZATHINE BENZYLPENICILLIN] [Concomitant]
     Dosage: UNK
     Dates: start: 20180313

REACTIONS (1)
  - Herpes virus infection [Unknown]

NARRATIVE: CASE EVENT DATE: 20180213
